FAERS Safety Report 15478621 (Version 1)
Quarter: 2018Q4

REPORT INFORMATION
  Report Type: Spontaneous
  Country: US (occurrence: US)
  Receive Date: 20181002
  Receipt Date: 20181002
  Transmission Date: 20190205
  Serious: Yes (Life-Threatening, Hospitalization)
  Sender: FDA-Public Use
  Company Number: None

PATIENT
  Age: 52 Year
  Sex: Female
  Weight: 96.62 kg

DRUGS (25)
  1. FUROSEMIDE. [Concomitant]
     Active Substance: FUROSEMIDE
  2. METOPROLOL. [Concomitant]
     Active Substance: METOPROLOL
  3. TOLTERODINE [Concomitant]
     Active Substance: TOLTERODINE
  4. ALLOPURINOL. [Concomitant]
     Active Substance: ALLOPURINOL
  5. DOXAZOSIN [Concomitant]
     Active Substance: DOXAZOSIN\DOXAZOSIN MESYLATE
  6. IRON [Concomitant]
     Active Substance: IRON
  7. ONDASETRON [Concomitant]
     Active Substance: ONDANSETRON
  8. PRAVASTATIN. [Concomitant]
     Active Substance: PRAVASTATIN
  9. CYMBALTA [Suspect]
     Active Substance: DULOXETINE HYDROCHLORIDE
     Indication: FIBROMYALGIA
     Dosage: ?          QUANTITY:60 MG MILLIGRAM(S);?
     Route: 048
     Dates: start: 20180430, end: 20180815
  10. ARIPIPRAZOLE. [Concomitant]
     Active Substance: ARIPIPRAZOLE
  11. VITAMIN D [Concomitant]
     Active Substance: CHOLECALCIFEROL
  12. DOXEPIN [Concomitant]
     Active Substance: DOXEPIN
  13. MULTIVITAMIN [Concomitant]
     Active Substance: VITAMINS
  14. NITROFURANTOIN. [Concomitant]
     Active Substance: NITROFURANTOIN
  15. LEVOTHYROXINE. [Concomitant]
     Active Substance: LEVOTHYROXINE
  16. OMEPRAZOLE DR [Concomitant]
     Active Substance: OMEPRAZOLE
  17. CYMBALTA [Suspect]
     Active Substance: DULOXETINE HYDROCHLORIDE
     Indication: BIPOLAR DISORDER
     Dosage: ?          QUANTITY:60 MG MILLIGRAM(S);?
     Route: 048
     Dates: start: 20180430, end: 20180815
  18. AMLODIPINE [Concomitant]
     Active Substance: AMLODIPINE BESYLATE
  19. ISOSORBIDEM [Concomitant]
  20. MOTRIN [Concomitant]
     Active Substance: IBUPROFEN
  21. BUPROPION. [Concomitant]
     Active Substance: BUPROPION
  22. MAGNESIUM [Concomitant]
     Active Substance: MAGNESIUM
  23. LOSARTAN. [Concomitant]
     Active Substance: LOSARTAN
  24. VALACYCLOVIR [Concomitant]
     Active Substance: VALACYCLOVIR HYDROCHLORIDE
  25. VITAMIN V [Concomitant]

REACTIONS (5)
  - Impulsive behaviour [None]
  - Intentional product use issue [None]
  - Suicide attempt [None]
  - Mania [None]
  - Feeling abnormal [None]

NARRATIVE: CASE EVENT DATE: 20180815
